FAERS Safety Report 20467310 (Version 1)
Quarter: 2022Q1

REPORT INFORMATION
  Report Type: Spontaneous
  Country: CN (occurrence: CN)
  Receive Date: 20220214
  Receipt Date: 20220214
  Transmission Date: 20220423
  Serious: Yes (Other)
  Sender: FDA-Public Use
  Company Number: CN-STRIDES ARCOLAB LIMITED-2022SP001261

PATIENT
  Age: 48 Year
  Sex: Female

DRUGS (1)
  1. DEXAMETHASONE [Suspect]
     Active Substance: DEXAMETHASONE
     Indication: Product used for unknown indication
     Dosage: 2 MILLIGRAM, PER DAY
     Route: 065
     Dates: start: 2015, end: 2018

REACTIONS (7)
  - Cerebrospinal fluid leakage [Unknown]
  - Intentional product misuse [Unknown]
  - Renal tuberculosis [Unknown]
  - Cushing^s syndrome [Recovered/Resolved]
  - Intracranial pressure increased [Recovered/Resolved]
  - Condition aggravated [Recovered/Resolved]
  - Overdose [Unknown]

NARRATIVE: CASE EVENT DATE: 20150101
